FAERS Safety Report 8452279-7 (Version None)
Quarter: 2012Q2

REPORT INFORMATION
  Report Type: 
  Country: None (occurrence: None)
  Receive Date: 20120620
  Receipt Date: 20120612
  Transmission Date: 20120825
  Serious: Yes (Hospitalization)
  Sender: FDA-Public Use
  Company Number: ES-ELI_LILLY_AND_COMPANY-ES201206003655

PATIENT
  Sex: Female
  Weight: 62 kg

DRUGS (9)
  1. PREGABALIN [Concomitant]
     Indication: PAIN
     Dosage: 75 MG, BID
     Route: 048
  2. JANUVIA [Concomitant]
     Indication: DIABETES MELLITUS
     Dosage: 100 MG, QD
     Route: 048
  3. HIDROCLOROTIAZIDE [Concomitant]
     Indication: HYPERTENSION
     Dosage: 25 MG, QD
     Route: 048
  4. OMEPRAZOLE [Concomitant]
     Indication: GASTRIC DISORDER
     Dosage: 20 MG, QD
     Route: 048
  5. METFORMIN HCL [Concomitant]
     Indication: DIABETES MELLITUS
     Dosage: 850 MG, BID
     Route: 048
  6. SINVASTATINA [Concomitant]
     Dosage: 20 MG, QD
     Route: 048
  7. HIDROFEROL [Concomitant]
     Indication: VITAMIN D
     Dosage: 266 MG, QD
     Route: 048
  8. FORTEO [Suspect]
     Indication: OSTEOPOROSIS
     Dosage: 20 UG, QD
     Route: 058
     Dates: start: 20120607
  9. VERISCAL D [Concomitant]
     Indication: OSTEOPOROSIS
     Dosage: 60 MG, QD
     Route: 048

REACTIONS (1)
  - GASTROENTERITIS VIRAL [None]
